FAERS Safety Report 18646735 (Version 1)
Quarter: 2020Q4

REPORT INFORMATION
  Report Type: Spontaneous
  Country: GB (occurrence: GB)
  Receive Date: 20201222
  Receipt Date: 20201222
  Transmission Date: 20210114
  Serious: Yes (Hospitalization)
  Sender: FDA-Public Use
  Company Number: GB-SAMSUNG BIOEPIS-SB-2020-37409

PATIENT

DRUGS (1)
  1. INFLIXIMAB [Suspect]
     Active Substance: INFLIXIMAB
     Indication: CROHN^S DISEASE
     Dosage: UNKNOWN?FOR MANY YEARS.
     Route: 065

REACTIONS (11)
  - Chest pain [Unknown]
  - Heart rate increased [Unknown]
  - Tachycardia paroxysmal [Recovered/Resolved with Sequelae]
  - Insomnia [Unknown]
  - Fatigue [Unknown]
  - Tremor [Unknown]
  - Asthenia [Unknown]
  - Agitation [Unknown]
  - Dyspnoea [Unknown]
  - Palpitations [Unknown]
  - Product use issue [Unknown]
